FAERS Safety Report 8974556 (Version 3)
Quarter: 2013Q2

REPORT INFORMATION
  Report Type: Spontaneous
  Country: JP (occurrence: JP)
  Receive Date: 20121220
  Receipt Date: 20130418
  Transmission Date: 20140414
  Serious: Yes (Other)
  Sender: FDA-Public Use
  Company Number: JP-AMGEN-JPNSP2012081570

PATIENT
  Age: 72 Year
  Sex: Male
  Weight: 39 kg

DRUGS (16)
  1. RANMARK [Suspect]
     Indication: METASTASES TO BONE
     Dosage: 120 MG, UNK
     Route: 058
     Dates: start: 20120607, end: 20120803
  2. ZOMETA [Suspect]
     Indication: METASTASES TO BONE
     Dosage: UNKNOWN
     Route: 042
     Dates: start: 20120922
  3. ZOMETA [Suspect]
     Route: 041
     Dates: start: 20120922
  4. ONETAXOTERE [Suspect]
     Indication: PROSTATE CANCER
     Route: 041
     Dates: start: 20120614, end: 20120814
  5. DOCETAXEL [Concomitant]
     Dosage: UNKNOWN
     Route: 065
  6. ZOLADEX LA [Concomitant]
     Dosage: UNKNOWN
     Route: 065
  7. ZOLADEX LA [Concomitant]
     Dosage: UNKNOWN
     Route: 065
  8. ZOLADEX LA [Concomitant]
     Dosage: UNKNOWN
     Route: 065
  9. ZOLADEX LA [Concomitant]
     Dosage: UNKNOWN
     Route: 065
  10. DECADRON [Concomitant]
     Dosage: UNKNOWN
     Route: 065
  11. DECADRON [Concomitant]
     Dosage: UNKNOWN
     Route: 065
  12. DECADRON [Concomitant]
     Dosage: UNKNOWN
     Route: 065
  13. DEXART [Concomitant]
     Dosage: UNKNOWN
     Route: 065
  14. DEXART [Concomitant]
     Dosage: UNKNOWN
     Route: 065
  15. RINDERON [Concomitant]
     Dosage: UNKNOWN
     Route: 065
  16. RINDERON [Concomitant]
     Dosage: UNKNOWN
     Route: 065

REACTIONS (1)
  - Exposed bone in jaw [Not Recovered/Not Resolved]
